FAERS Safety Report 7880168-5 (Version None)
Quarter: 2011Q4

REPORT INFORMATION
  Report Type: 
  Country: None (occurrence: None)
  Receive Date: 20111101
  Receipt Date: 20111025
  Transmission Date: 20120403
  Serious: Yes (Hospitalization, Other)
  Sender: FDA-Public Use
  Company Number: US-PFIZER INC-2011261243

PATIENT
  Sex: Female

DRUGS (1)
  1. CHANTIX [Suspect]
     Dosage: UNK
     Dates: start: 20081101

REACTIONS (6)
  - DEPRESSION [None]
  - IRRITABILITY [None]
  - SUICIDE ATTEMPT [None]
  - NIGHTMARE [None]
  - ANXIETY [None]
  - MOOD SWINGS [None]
